FAERS Safety Report 10022097 (Version 1)
Quarter: 2014Q1

REPORT INFORMATION
  Report Type: Spontaneous
  Country: US (occurrence: US)
  Receive Date: 20140319
  Receipt Date: 20140319
  Transmission Date: 20141002
  Serious: Yes (Hospitalization)
  Sender: FDA-Public Use
  Company Number: US-GLAXOSMITHKLINE-A1064890A

PATIENT
  Age: 74 Year
  Sex: Female

DRUGS (5)
  1. LOVAZA [Suspect]
     Indication: BLOOD CHOLESTEROL INCREASED
     Dosage: 2CAP PER DAY
     Route: 065
     Dates: start: 2012
  2. BABY ASPIRIN [Concomitant]
  3. PRILOSEC [Concomitant]
  4. LISINOPRIL [Concomitant]
  5. XANAX [Concomitant]

REACTIONS (4)
  - Pneumonia [Recovered/Resolved]
  - Herpes zoster [Not Recovered/Not Resolved]
  - Neuropathy peripheral [Not Recovered/Not Resolved]
  - Pain in extremity [Not Recovered/Not Resolved]
